FAERS Safety Report 16217378 (Version 8)
Quarter: 2020Q1

REPORT INFORMATION
  Report Type: Spontaneous
  Country: US (occurrence: US)
  Receive Date: 20190419
  Receipt Date: 20200207
  Transmission Date: 20200409
  Serious: No
  Sender: FDA-Public Use
  Company Number: US-PFIZER INC-2016021638

PATIENT
  Age: 48 Year
  Sex: Female

DRUGS (27)
  1. LYRICA [Suspect]
     Active Substance: PREGABALIN
     Dosage: 225 MG, UNK
  2. MIRALAX [Concomitant]
     Active Substance: POLYETHYLENE GLYCOL 3350
     Indication: CONSTIPATION
     Dosage: UNK, AS NEEDED (TWICE DAILY AS NEEDED)
     Route: 048
  3. QUETIAPINE FUMARATE. [Concomitant]
     Active Substance: QUETIAPINE FUMARATE
     Indication: ANXIETY
     Dosage: 100 MG, 1X/DAY (ONE TABLET BY MOUTH AT BEDTIME)
     Route: 048
  4. MELOXICAM. [Concomitant]
     Active Substance: MELOXICAM
     Indication: ARTHRALGIA
     Dosage: 15 MG, DAILY (TAKE ONE TABLET DAILY WITH FOOD )
  5. LYRICA [Suspect]
     Active Substance: PREGABALIN
     Indication: FIBROMYALGIA
     Dosage: 300 MG, 2X/DAY (1 CAPSULE TWICE DAILY FOR FIBROMYALGIA)
     Route: 048
  6. OMEPRAZOLE. [Concomitant]
     Active Substance: OMEPRAZOLE
     Indication: GASTROOESOPHAGEAL REFLUX DISEASE
     Dosage: 40 MG, 2X/DAY (1 CAPSULE TWICE DAILY BEFORE MEALS)
     Route: 048
  7. IPRATROPIUM BROMIDE. [Concomitant]
     Active Substance: IPRATROPIUM BROMIDE
     Indication: VASOMOTOR RHINITIS
     Dosage: UNK, AS NEEDED (USE 2 SPRAYS IN EACH NOSTRIL 4 TIMES DAILY PRN)
     Route: 045
  8. QUETIAPINE FUMARATE. [Concomitant]
     Active Substance: QUETIAPINE FUMARATE
     Indication: INSOMNIA
  9. PROBIOTICS [Concomitant]
     Active Substance: PROBIOTICS NOS
     Indication: ROUTINE HEALTH MAINTENANCE
     Dosage: UNK
  10. LEVOTHYROXINE SODIUM. [Concomitant]
     Active Substance: LEVOTHYROXINE SODIUM
     Indication: HYPOTHYROIDISM
     Dosage: 125 UG, DAILY (ONE TABLET BY MOUTH DAILY AS DIRECTED)
     Route: 048
  11. CYCLOBENZAPRINE HCL [Concomitant]
     Active Substance: CYCLOBENZAPRINE HYDROCHLORIDE
     Indication: MUSCLE SPASMS
     Dosage: UNK (TAKE HALF-ONE TABLET AT BEDTIME FOR MUSCLE PAIN)
  12. POLYETHYLENE [Concomitant]
     Active Substance: HIGH DENSITY POLYETHYLENE
     Dosage: UNK
  13. ZOLPIDEM [Concomitant]
     Active Substance: ZOLPIDEM TARTRATE
     Dosage: UNK
  14. ESTRADIOL. [Concomitant]
     Active Substance: ESTRADIOL
     Indication: HOT FLUSH
     Dosage: 2 MG, 1X/DAY (TAKE ONE TABLET DAILY AT BEDTIME FOR HOT FLASHES)
     Route: 048
  15. OXYCODONE AND ACETAMINOPHEN [Concomitant]
     Active Substance: ACETAMINOPHEN\OXYCODONE HYDROCHLORIDE
     Indication: INTERVERTEBRAL DISC DEGENERATION
  16. TYLENOL 8HR [Concomitant]
     Active Substance: ACETAMINOPHEN
     Indication: ARTHRALGIA
     Dosage: 1300 MG, 3X/DAY (2 TABLETS 3 TIMES DAILY WITH MEALS)
  17. MELOXICAM. [Concomitant]
     Active Substance: MELOXICAM
     Indication: INTERVERTEBRAL DISC DEGENERATION
  18. DULOXETINE HCL [Concomitant]
     Active Substance: DULOXETINE HYDROCHLORIDE
     Indication: FIBROMYALGIA
     Dosage: UNK, DAILY (TAKE ONE CAPSULE BY MOUTH DAILY FOR FIBROMYALGIA (90 MG TOTAL))
     Route: 048
  19. TRAZODONE HYDROCHLORIDE. [Concomitant]
     Active Substance: TRAZODONE HYDROCHLORIDE
     Indication: INSOMNIA
     Dosage: 150 MG, 1X/DAY (TAKE ONE TABLET AT BEDTIME)
     Route: 048
  20. IMITREX [Concomitant]
     Active Substance: SUMATRIPTAN SUCCINATE
     Indication: MIGRAINE
     Dosage: UNK (TAKE HALF-ONE TABLET AT THE ONSET OF HEADACHE, MAY REPEAT IN 2 HOURS IF NEEDED)
  21. TIZANIDINE HCL [Concomitant]
     Active Substance: TIZANIDINE HYDROCHLORIDE
     Indication: MUSCLE SPASMS
     Dosage: UNK, AS NEEDED (HALF-ONE TABLET 3 TIMES DAILY AS NEEDED)
     Route: 048
  22. OXYCODONE AND ACETAMINOPHEN [Concomitant]
     Active Substance: ACETAMINOPHEN\OXYCODONE HYDROCHLORIDE
     Indication: PAIN
     Dosage: UNK UNK, 4X/DAY (OXYCODONE HYDROCHLORIDE:325MG/  OXYCODONE HYDROCHOLORIDE: 5 MG )
  23. QUETIAPINE FUMARATE. [Concomitant]
     Active Substance: QUETIAPINE FUMARATE
     Indication: DEPRESSION
  24. 5-HTP [OXITRIPTAN] [Concomitant]
     Indication: INSOMNIA
     Dosage: 200 MG, AS NEEDED (2 CAPSULES AT BEDTIME FOR SLEEP, AS NEEDED)
     Route: 048
  25. ZOLPIDEM TARTRATE. [Concomitant]
     Active Substance: ZOLPIDEM TARTRATE
     Indication: INSOMNIA
     Dosage: 10 MG, AS NEEDED (TAKE ONE TABLET BEDTIME PRN)
     Route: 048
  26. OXYCODONE AND ACETAMINOPHEN [Concomitant]
     Active Substance: ACETAMINOPHEN\OXYCODONE HYDROCHLORIDE
     Indication: ARTHRALGIA
  27. OXYCODONE AND ACETAMINOPHEN [Concomitant]
     Active Substance: ACETAMINOPHEN\OXYCODONE HYDROCHLORIDE
     Indication: JOINT ARTHROPLASTY

REACTIONS (4)
  - Product dispensing error [Unknown]
  - Product use issue [Unknown]
  - Off label use [Unknown]
  - Drug ineffective [Unknown]
